FAERS Safety Report 23346089 (Version 2)
Quarter: 2024Q1

REPORT INFORMATION
  Report Type: Spontaneous
  Country: None (occurrence: JP)
  Receive Date: 20231228
  Receipt Date: 20240131
  Transmission Date: 20240410
  Serious: Yes (Other)
  Sender: FDA-Public Use
  Company Number: JP-Ascend Therapeutics US, LLC-2149857

PATIENT
  Age: 53 Year
  Sex: Female

DRUGS (3)
  1. ESTROGEL [Suspect]
     Active Substance: ESTRADIOL
     Indication: Menopausal symptoms
     Route: 065
  2. ESTROGEL [Suspect]
     Active Substance: ESTRADIOL
     Route: 065
  3. DUPHASTON [Concomitant]
     Active Substance: DYDROGESTERONE
     Route: 048

REACTIONS (1)
  - Appendicitis [Recovered/Resolved]

NARRATIVE: CASE EVENT DATE: 20231218
